FAERS Safety Report 19824497 (Version 1)
Quarter: 2021Q3

REPORT INFORMATION
  Report Type: Report from Study
  Country: US (occurrence: US)
  Receive Date: 20210913
  Receipt Date: 20210913
  Transmission Date: 20211014
  Serious: Yes (Other)
  Sender: FDA-Public Use
  Company Number: NVSC2021US204114

PATIENT
  Sex: Male

DRUGS (1)
  1. COSENTYX [Suspect]
     Active Substance: SECUKINUMAB
     Indication: PSORIATIC ARTHROPATHY
     Dosage: UNK
     Route: 003

REACTIONS (4)
  - Incorrect route of product administration [Unknown]
  - Insomnia [Unknown]
  - Pulmonary oedema [Recovered/Resolved with Sequelae]
  - Pain [Unknown]
